FAERS Safety Report 12743710 (Version 1)
Quarter: 2016Q3

REPORT INFORMATION
  Report Type: Spontaneous
  Country: FR (occurrence: FR)
  Receive Date: 20160914
  Receipt Date: 20160914
  Transmission Date: 20161109
  Serious: Yes (Hospitalization)
  Sender: FDA-Public Use
  Company Number: FR-PFIZER INC-2001048585FR

PATIENT
  Age: 73 Year
  Sex: Male

DRUGS (10)
  1. NOVATREX NOS [Suspect]
     Active Substance: AZITHROMYCIN OR METHOTREXATE SODIUM
     Indication: POLYARTHRITIS
     Dosage: 4 DF, WEEKLY
     Route: 048
     Dates: start: 1994
  2. MEDROL [Suspect]
     Active Substance: METHYLPREDNISOLONE
     Indication: POLYARTHRITIS
     Dosage: 4 MG, 2X/DAY
     Route: 048
     Dates: start: 1994
  3. IMOVANE [Concomitant]
     Active Substance: ZOPICLONE
     Indication: MENTAL DISORDER
  4. EQUANIL [Concomitant]
     Active Substance: MEPROBAMATE
     Indication: MENTAL DISORDER
  5. OGAST [Suspect]
     Active Substance: LANSOPRAZOLE
     Dosage: 15 MG, 1X/DAY
     Route: 048
  6. REMICADE [Suspect]
     Active Substance: INFLIXIMAB
     Dosage: 2 DF, SINGLE
     Route: 042
     Dates: start: 20010102
  7. SERESTA [Concomitant]
     Active Substance: OXAZEPAM
     Indication: MENTAL DISORDER
  8. ENBREL [Suspect]
     Active Substance: ETANERCEPT
     Indication: POLYARTHRITIS
     Dosage: UNK
  9. ATIVAN [Concomitant]
     Active Substance: LORAZEPAM
     Indication: MENTAL DISORDER
  10. THERALENE [Concomitant]
     Active Substance: TRIMEPRAZINE
     Indication: MENTAL DISORDER

REACTIONS (2)
  - Delirium [Not Recovered/Not Resolved]
  - Hallucination, visual [Not Recovered/Not Resolved]
